FAERS Safety Report 7376778-4 (Version None)
Quarter: 2011Q1

REPORT INFORMATION
  Report Type: 
  Country: None (occurrence: None)
  Receive Date: 20110325
  Receipt Date: 20110317
  Transmission Date: 20110831
  Serious: Yes (Hospitalization)
  Sender: FDA-Public Use
  Company Number: US-ASTRAZENECA-2011SE15287

PATIENT

DRUGS (1)
  1. MERREM [Suspect]
     Route: 042

REACTIONS (1)
  - CYSTIC FIBROSIS [None]
